FAERS Safety Report 23518847 (Version 1)
Quarter: 2024Q1

REPORT INFORMATION
  Report Type: Spontaneous
  Country: PT (occurrence: PT)
  Receive Date: 20240213
  Receipt Date: 20240213
  Transmission Date: 20240410
  Serious: Yes (Life-Threatening, Hospitalization, Other)
  Sender: FDA-Public Use
  Company Number: PT-FreseniusKabi-FK202402264

PATIENT
  Age: 31 Year
  Sex: Female

DRUGS (5)
  1. GENTAMICIN [Suspect]
     Active Substance: GENTAMICIN
     Indication: Abortion infected
  2. TRANEXAMIC ACID [Suspect]
     Active Substance: TRANEXAMIC ACID
     Indication: Product used for unknown indication
  3. AMPICILLIN [Concomitant]
     Active Substance: AMPICILLIN
     Indication: Abortion infected
  4. CLINDAMYCIN [Concomitant]
     Active Substance: CLINDAMYCIN
     Indication: Abortion infected
  5. NOREPINEPHRINE [Concomitant]
     Active Substance: NOREPINEPHRINE
     Indication: Vasopressive therapy
     Dosage: 0.5%MCG/KG/MIN

REACTIONS (1)
  - Renal cortical necrosis [Not Recovered/Not Resolved]
